FAERS Safety Report 19407594 (Version 2)
Quarter: 2021Q2

REPORT INFORMATION
  Report Type: Spontaneous
  Country: US (occurrence: US)
  Receive Date: 20210612
  Receipt Date: 20210619
  Transmission Date: 20210717
  Serious: No
  Sender: FDA-Public Use
  Company Number: US-UNITED THERAPEUTICS-UNT-2021-010709

PATIENT
  Age: 71 Year
  Sex: Female
  Weight: 85.71 kg

DRUGS (2)
  1. REMODULIN [Suspect]
     Active Substance: TREPROSTINIL
     Indication: PULMONARY ARTERIAL HYPERTENSION
     Dosage: 0.011 ?G/KG, CONTINUING
     Route: 058
     Dates: start: 20210602
  2. REMODULIN [Suspect]
     Active Substance: TREPROSTINIL
     Dosage: 0.013 ?G/KG, CONTINUING
     Route: 058
     Dates: start: 202106

REACTIONS (8)
  - Fatigue [Unknown]
  - Nausea [Unknown]
  - Infusion site pain [Unknown]
  - Weight decreased [Unknown]
  - Pain [Unknown]
  - Headache [Unknown]
  - Oxygen saturation decreased [Unknown]
  - Infusion site warmth [Unknown]

NARRATIVE: CASE EVENT DATE: 202106
